FAERS Safety Report 4803180-9 (Version None)
Quarter: 2005Q4

REPORT INFORMATION
  Report Type: 
  Country: None (occurrence: None)
  Receive Date: 20051019
  Receipt Date: 20051010
  Transmission Date: 20060501
  Serious: Yes (Other)
  Sender: FDA-Public Use
  Company Number: PHNU2005DE03426

PATIENT
  Sex: Female

DRUGS (3)
  1. ZOMETA [Suspect]
     Indication: METASTASES TO BONE
     Dosage: 4 MG, TIW
     Dates: start: 20030101, end: 20050901
  2. CAELYX [Concomitant]
  3. ANTHRACYCLINES [Concomitant]
     Route: 065

REACTIONS (2)
  - JAW OPERATION [None]
  - OSTEONECROSIS [None]
